FAERS Safety Report 4409375-0 (Version None)
Quarter: 2004Q3

REPORT INFORMATION
  Report Type: 
  Country: None (occurrence: None)
  Receive Date: 20040723
  Receipt Date: 20040712
  Transmission Date: 20050211
  Serious: Yes (Hospitalization)
  Sender: FDA-Public Use
  Company Number: 238132

PATIENT
  Age: 66 Year
  Sex: Male

DRUGS (12)
  1. NOVORAPID (INSULIN ASPART) SOLUTION FOR INJECTION, 100U/MOL [Suspect]
     Indication: ILL-DEFINED DISORDER
     Dates: start: 20040602
  2. POTASSIUM PERCHLORATE (POTASSIUM PERCHLORATE) [Concomitant]
  3. CALIPARIN (HEPARIN CALCIUM) [Concomitant]
  4. AUGMENTIN /UNK/ (AMOXICILLIN TRIHYDRATE, CLAVULANATE POTASSIUM) [Concomitant]
  5. NEO-MERCAZOLE TAB [Concomitant]
  6. ADANCOR (NICORANDIL) [Concomitant]
  7. PRAVASTATIN SODIUM [Concomitant]
  8. CARDENSIEL (BISOPROLOL FUMURATE) [Concomitant]
  9. POTASSIUM CHLORIDE [Concomitant]
  10. LASIX [Concomitant]
  11. KARDEGIC /FRA/ (ACETYLSALICYLIC ACID) [Concomitant]
  12. PARIET (RABEPRAZOLE SODIUM) [Concomitant]

REACTIONS (3)
  - DERMATITIS [None]
  - DYSHIDROSIS [None]
  - PRURITUS [None]
